FAERS Safety Report 6406799-7 (Version None)
Quarter: 2009Q4

REPORT INFORMATION
  Report Type: 
  Country: None (occurrence: None)
  Receive Date: 20091020
  Receipt Date: 20091007
  Transmission Date: 20100525
  Serious: Yes (Other)
  Sender: FDA-Public Use
  Company Number: JP-PFIZER INC-2009280248

PATIENT
  Age: 81 Year

DRUGS (2)
  1. SOLU-CORTEF [Suspect]
     Dosage: UNK
     Dates: start: 20091005, end: 20091006
  2. GLYMACKEN [Suspect]
     Dosage: UNK
     Dates: start: 20091005, end: 20091006

REACTIONS (1)
  - ANGIOEDEMA [None]
